FAERS Safety Report 5868818-6 (Version None)
Quarter: 2008Q3

REPORT INFORMATION
  Report Type: 
  Country: None (occurrence: None)
  Receive Date: 20080903
  Receipt Date: 20080827
  Transmission Date: 20090109
  Serious: Yes (Other)
  Sender: FDA-Public Use
  Company Number: US-ASTRAZENECA-2008UW17699

PATIENT
  Age: 89 Year
  Sex: Female

DRUGS (6)
  1. PRILOSEC OTC [Suspect]
     Indication: ULCER
     Route: 048
     Dates: start: 20030827
  2. FORUSOMIDE [Concomitant]
  3. PHOSOMAX [Concomitant]
  4. MACODENTIN [Concomitant]
  5. ASPIRIN [Concomitant]
     Indication: CARDIOVASCULAR INSUFFICIENCY
  6. QUINAPRIL [Concomitant]
     Indication: CARDIAC DISORDER

REACTIONS (4)
  - CONFUSIONAL STATE [None]
  - MEMORY IMPAIRMENT [None]
  - PARKINSON'S DISEASE [None]
  - VISION BLURRED [None]
